FAERS Safety Report 19485142 (Version 8)
Quarter: 2024Q4

REPORT INFORMATION
  Report Type: Spontaneous
  Country: PT (occurrence: PT)
  Receive Date: 20210702
  Receipt Date: 20241112
  Transmission Date: 20250115
  Serious: Yes (Hospitalization, Disabling, Other)
  Sender: AUROBINDO
  Company Number: PT-AUROBINDO-AUR-APL-2021-027381

PATIENT
  Age: 79 Year
  Sex: Male

DRUGS (24)
  1. FUROSEMIDE [Suspect]
     Active Substance: FUROSEMIDE
     Indication: Product used for unknown indication
     Dosage: 20 MILLIGRAM, DAILY
     Route: 065
  2. PANTOPRAZOLE [Suspect]
     Active Substance: PANTOPRAZOLE
     Indication: Product used for unknown indication
     Dosage: 20 MILLIGRAM, DAILY
     Route: 065
  3. PERINDOPRIL [Suspect]
     Active Substance: PERINDOPRIL
     Indication: Product used for unknown indication
     Dosage: 4 MILLIGRAM, DAILY
     Route: 065
  4. QUETIAPINE [Suspect]
     Active Substance: QUETIAPINE
     Indication: Psychotic disorder
     Dosage: 100 MILLIGRAM, DAILY
     Route: 065
  5. QUETIAPINE [Suspect]
     Active Substance: QUETIAPINE
     Indication: Insomnia
     Dosage: 200 MILLIGRAM, DAILY
     Route: 065
  6. QUETIAPINE [Suspect]
     Active Substance: QUETIAPINE
     Dosage: 50 MILLIGRAM, DAILY
     Route: 048
  7. RISPERIDONE [Suspect]
     Active Substance: RISPERIDONE
     Indication: Psychotic disorder
     Dosage: 4 MILLIGRAM, ONCE A DAY
     Route: 065
  8. RISPERIDONE [Suspect]
     Active Substance: RISPERIDONE
     Dosage: 1 MILLIGRAM, ONCE A DAY
     Route: 065
  9. ROSUVASTATIN [Suspect]
     Active Substance: ROSUVASTATIN
     Indication: Product used for unknown indication
     Dosage: 20 MILLIGRAM, DAILY
     Route: 065
  10. TRAZODONE [Suspect]
     Active Substance: TRAZODONE HYDROCHLORIDE
     Indication: Product used for unknown indication
     Dosage: 50 MILLIGRAM, DAILY
     Route: 065
  11. VALPROIC ACID [Suspect]
     Active Substance: VALPROIC ACID
     Indication: Psychotic disorder
     Dosage: 800 MILLIGRAM, DAILY
     Route: 065
  12. VALPROIC ACID [Suspect]
     Active Substance: VALPROIC ACID
     Indication: Psychotic disorder due to a general medical condition
     Dosage: 500 MILLIGRAM, DAILY
     Route: 048
  13. VALPROIC ACID [Suspect]
     Active Substance: VALPROIC ACID
     Indication: Behaviour disorder
  14. PRADAXA [Suspect]
     Active Substance: DABIGATRAN ETEXILATE MESYLATE
     Indication: Middle cerebral artery stroke
     Dosage: 110 MILLIGRAM, TWO TIMES A DAY
     Route: 065
  15. RISPERDAL [Suspect]
     Active Substance: RISPERIDONE
     Indication: Psychotic disorder
     Dosage: 4 MILLIGRAM, DAILY
     Route: 065
  16. RISPERDAL [Suspect]
     Active Substance: RISPERIDONE
     Indication: Psychotic disorder due to a general medical condition
     Dosage: 1 MILLIGRAM, DAILY
     Route: 065
  17. RISPERDAL [Suspect]
     Active Substance: RISPERIDONE
     Dosage: 1 MILLIGRAM, REDUCED TO AN UNSPECIFIED DOSE, THEN RETURNED TO PREVIOUS DOSE OF 1 MG PER DAY
     Route: 065
  18. DABIGATRAN [Concomitant]
     Active Substance: DABIGATRAN
     Indication: Product used for unknown indication
     Dosage: 110 MILLIGRAM, TWO TIMES A DAY
     Route: 065
  19. FUROSEMIDE [Concomitant]
     Active Substance: FUROSEMIDE
     Indication: Product used for unknown indication
     Dosage: 20 MILLIGRAM, ONCE A DAY
     Route: 065
  20. PANTOPRAZOLE [Concomitant]
     Active Substance: PANTOPRAZOLE
     Indication: Product used for unknown indication
     Dosage: 20 MILLIGRAM, ONCE A DAY
     Route: 065
  21. PERINDOPRIL [Concomitant]
     Active Substance: PERINDOPRIL
     Indication: Product used for unknown indication
     Dosage: 4 MILLIGRAM, ONCE A DAY
     Route: 065
  22. QUETIAPINE [Concomitant]
     Active Substance: QUETIAPINE
     Indication: Insomnia
     Dosage: 100 MILLIGRAM, ONCE A DAY
     Route: 065
  23. ROSUVASTATIN [Concomitant]
     Active Substance: ROSUVASTATIN
     Indication: Product used for unknown indication
     Dosage: 20 MILLIGRAM, ONCE A DAY
     Route: 065
  24. TRAZODONE [Concomitant]
     Active Substance: TRAZODONE HYDROCHLORIDE
     Indication: Product used for unknown indication
     Dosage: 50 MILLIGRAM, ONCE A DAY
     Route: 065

REACTIONS (16)
  - Aggression [Recovering/Resolving]
  - Psychotic disorder due to a general medical condition [Recovering/Resolving]
  - Salivary hypersecretion [Recovering/Resolving]
  - Dysarthria [Recovering/Resolving]
  - Ischaemia [Unknown]
  - Insomnia [Unknown]
  - Psychomotor retardation [Unknown]
  - Psychomotor skills impaired [Recovered/Resolved]
  - Condition aggravated [Recovered/Resolved]
  - Psychotic symptom [Unknown]
  - Thrombocytopenia [Recovered/Resolved]
  - Drug ineffective [Recovered/Resolved]
  - Labelled drug-drug interaction medication error [Unknown]
  - Platelet count increased [Unknown]
  - Off label use [Recovered/Resolved]
  - Product use in unapproved indication [Unknown]
